FAERS Safety Report 5823757-1 (Version None)
Quarter: 2008Q3

REPORT INFORMATION
  Report Type: 
  Country: None (occurrence: None)
  Receive Date: 20080725
  Receipt Date: 20080715
  Transmission Date: 20090109
  Serious: Yes (Other)
  Sender: FDA-Public Use
  Company Number: US-PFIZER INC-2008059257

PATIENT
  Sex: Male

DRUGS (1)
  1. XANAX [Suspect]
     Indication: PANIC ATTACK

REACTIONS (6)
  - AGGRESSION [None]
  - CONVULSION [None]
  - DEMENTIA [None]
  - PANIC ATTACK [None]
  - POOR QUALITY SLEEP [None]
  - SCREAMING [None]
